FAERS Safety Report 6582643-2 (Version None)
Quarter: 2010Q1

REPORT INFORMATION
  Report Type: 
  Country: None (occurrence: None)
  Receive Date: 20100216
  Receipt Date: 20100204
  Transmission Date: 20100710
  Serious: Yes (Other)
  Sender: FDA-Public Use
  Company Number: RU-ELI_LILLY_AND_COMPANY-RU201002002926

PATIENT
  Sex: Female

DRUGS (1)
  1. ZYPREXA [Suspect]
     Indication: SCHIZOPHRENIA
     Dosage: UNK, OTHER
     Route: 048
     Dates: start: 20100201, end: 20100201

REACTIONS (3)
  - DEHYDRATION [None]
  - INTENTIONAL DRUG MISUSE [None]
  - VOMITING PROJECTILE [None]
